FAERS Safety Report 6303898-5 (Version None)
Quarter: 2009Q3

REPORT INFORMATION
  Report Type: 
  Country: None (occurrence: None)
  Receive Date: 20090805
  Receipt Date: 20090721
  Transmission Date: 20100115
  Serious: Yes (Death)
  Sender: FDA-Public Use
  Company Number: AE 2009-087

PATIENT
  Age: 65 Year
  Sex: Female

DRUGS (3)
  1. FAZACLO ODT [Suspect]
     Indication: SCHIZOPHRENIA
     Dosage: 100 MG DAILY PO
     Route: 048
     Dates: start: 20050701, end: 20090713
  2. KLONOPIN WAFERS [Concomitant]
  3. CHEMOTHERAPY (UNKNOWN) [Concomitant]

REACTIONS (2)
  - DISEASE COMPLICATION [None]
  - OVARIAN CANCER [None]
